FAERS Safety Report 8395510-9 (Version None)
Quarter: 2012Q2

REPORT INFORMATION
  Report Type: 
  Country: None (occurrence: None)
  Receive Date: 20120530
  Receipt Date: 20110518
  Transmission Date: 20120825
  Serious: No
  Sender: FDA-Public Use
  Company Number: US-GLAXOSMITHKLINE-A0929343A

PATIENT
  Age: 60 Year
  Sex: Male

DRUGS (2)
  1. ACIPHEX [Concomitant]
  2. VENTOLIN [Suspect]
     Indication: BRONCHITIS
     Dosage: 2PUFF AS REQUIRED
     Route: 055
     Dates: start: 20101115

REACTIONS (1)
  - BLOOD GLUCOSE INCREASED [None]
